FAERS Safety Report 8114850-1 (Version None)
Quarter: 2012Q1

REPORT INFORMATION
  Report Type: 
  Country: None (occurrence: None)
  Receive Date: 20120113
  Receipt Date: 20120103
  Transmission Date: 20120608
  Serious: No
  Sender: FDA-Public Use
  Company Number: 2011030633

PATIENT
  Age: 33 Year
  Sex: Female

DRUGS (2)
  1. RHOPHYLAC [Suspect]
     Indication: PROPHYLAXIS AGAINST RH ISOIMMUNISATION
     Dosage: 200 UG, 300 UG, INTRAMUSCULAR
     Route: 030
     Dates: start: 20110525
  2. RHOPHYLAC [Suspect]
     Indication: PROPHYLAXIS AGAINST RH ISOIMMUNISATION
     Dosage: 200 UG, 300 UG, INTRAMUSCULAR
     Route: 030
     Dates: start: 20111003

REACTIONS (4)
  - NAUSEA [None]
  - MATERNAL EXPOSURE DURING PREGNANCY [None]
  - MALAISE [None]
  - PALPITATIONS [None]
